FAERS Safety Report 11111405 (Version 2)
Quarter: 2015Q3

REPORT INFORMATION
  Report Type: Spontaneous
  Country: US (occurrence: US)
  Receive Date: 20150513
  Receipt Date: 20150722
  Transmission Date: 20151125
  Serious: Yes (Hospitalization, Disabling)
  Sender: FDA-Public Use
  Company Number: US-ENDO PHARMACEUTICALS INC.-2015-000810

PATIENT
  Age: 52 Year
  Sex: Male
  Weight: 106.69 kg

DRUGS (5)
  1. PRAVASTATIN [Concomitant]
     Active Substance: PRAVASTATIN\PRAVASTATIN SODIUM
     Indication: BLOOD CHOLESTEROL
     Route: 065
     Dates: start: 2012
  2. FORTESTA [Suspect]
     Active Substance: TESTOSTERONE
     Indication: ANDROGEN REPLACEMENT THERAPY
     Route: 061
     Dates: start: 201402, end: 201404
  3. ANDROGEL [Suspect]
     Active Substance: TESTOSTERONE
     Indication: ANDROGEN REPLACEMENT THERAPY
     Route: 061
     Dates: start: 201109, end: 201306
  4. METHADONE [Concomitant]
     Active Substance: METHADONE HYDROCHLORIDE
     Indication: PAIN MANAGEMENT
     Route: 065
     Dates: start: 2008
  5. DILAUDID [Concomitant]
     Active Substance: HYDROMORPHONE HYDROCHLORIDE
     Indication: PAIN MANAGEMENT
     Route: 065
     Dates: start: 2012

REACTIONS (4)
  - Ischaemic stroke [Not Recovered/Not Resolved]
  - Deep vein thrombosis [Not Recovered/Not Resolved]
  - Pulmonary embolism [Not Recovered/Not Resolved]
  - Subarachnoid haemorrhage [Not Recovered/Not Resolved]

NARRATIVE: CASE EVENT DATE: 20130626
